FAERS Safety Report 8183562-0 (Version None)
Quarter: 2012Q1

REPORT INFORMATION
  Report Type: 
  Country: None (occurrence: None)
  Receive Date: 20120305
  Receipt Date: 20120223
  Transmission Date: 20120608
  Serious: Yes (Other)
  Sender: FDA-Public Use
  Company Number: TR-JNJFOC-20120300764

PATIENT
  Age: 24 Month

DRUGS (2)
  1. ZYRTEC [Suspect]
     Route: 065
  2. ZYRTEC [Suspect]
     Indication: COUGH
     Route: 065

REACTIONS (2)
  - CONVULSION [None]
  - OFF LABEL USE [None]
